FAERS Safety Report 4997903-6 (Version None)
Quarter: 2006Q2

REPORT INFORMATION
  Report Type: 
  Country: None (occurrence: None)
  Receive Date: 20060508
  Receipt Date: 20060425
  Transmission Date: 20061013
  Serious: Yes (Other)
  Sender: FDA-Public Use
  Company Number: 2006059016

PATIENT
  Sex: Female

DRUGS (1)
  1. LIPITOR [Suspect]
     Indication: BLOOD CHOLESTEROL INCREASED
     Dosage: 40 MG
     Dates: start: 20051001, end: 20060323

REACTIONS (4)
  - ARTHRALGIA [None]
  - CRYING [None]
  - INFLUENZA LIKE ILLNESS [None]
  - MYALGIA [None]
